FAERS Safety Report 18480744 (Version 1)
Quarter: 2020Q4

REPORT INFORMATION
  Report Type: Spontaneous
  Country: US (occurrence: US)
  Receive Date: 20201109
  Receipt Date: 20201109
  Transmission Date: 20210114
  Serious: No
  Sender: FDA-Public Use
  Company Number: US-MATRIXX INITIATIVES, INC.-2093723

PATIENT
  Age: 17 Year
  Sex: Female
  Weight: 63.64 kg

DRUGS (1)
  1. ZICAM COLD REMEDY NASAL SWABS (HOMEOPATHICS) [Suspect]
     Active Substance: HOMEOPATHICS\ZINC ACETATE\ZINC GLUCONATE
     Indication: NASAL CONGESTION
     Route: 045
     Dates: start: 20201102, end: 20201104

REACTIONS (1)
  - Anosmia [Not Recovered/Not Resolved]
